FAERS Safety Report 8523514-1 (Version None)
Quarter: 2012Q3

REPORT INFORMATION
  Report Type: 
  Country: None (occurrence: None)
  Receive Date: 20120720
  Receipt Date: 20120712
  Transmission Date: 20120928
  Serious: Yes (Other)
  Sender: FDA-Public Use
  Company Number: CA-JNJFOC-20120707132

PATIENT
  Sex: Female
  Weight: 60.9 kg

DRUGS (2)
  1. REMICADE [Suspect]
     Indication: CROHN'S DISEASE
     Route: 042
     Dates: start: 20090901
  2. REMICADE [Suspect]
     Route: 042

REACTIONS (3)
  - SHORT-BOWEL SYNDROME [None]
  - FISTULA [None]
  - THERAPEUTIC RESPONSE DECREASED [None]
